FAERS Safety Report 9417834 (Version 2)
Quarter: 2013Q3

REPORT INFORMATION
  Report Type: Spontaneous
  Country: DK (occurrence: IT)
  Receive Date: 20130724
  Receipt Date: 20130912
  Transmission Date: 20140515
  Serious: Yes (Hospitalization)
  Sender: FDA-Public Use
  Company Number: IT-FRI-1000046991

PATIENT
  Age: 7 Year
  Sex: Male

DRUGS (1)
  1. ESCITALOPRAM ORAL SOLUTION [Suspect]
     Indication: PRODUCT USED FOR UNKNOWN INDICATION
     Dosage: OVERDOSE: 10 DROPS
     Route: 048
     Dates: start: 20130416, end: 20130416

REACTIONS (3)
  - Accidental exposure to product by child [Recovered/Resolved]
  - Bradycardia [Recovered/Resolved]
  - Medication error [Recovered/Resolved]
